FAERS Safety Report 20492245 (Version 1)
Quarter: 2022Q1

REPORT INFORMATION
  Report Type: Spontaneous
  Country: BR (occurrence: BR)
  Receive Date: 20220218
  Receipt Date: 20220218
  Transmission Date: 20220423
  Serious: Yes (Life-Threatening, Hospitalization)
  Sender: FDA-Public Use
  Company Number: BR-BIOMARINAP-BR-2022-141628

PATIENT
  Age: 48 Year
  Sex: Female
  Weight: 48.8 kg

DRUGS (1)
  1. NAGLAZYME [Suspect]
     Active Substance: GALSULFASE
     Indication: Mucopolysaccharidosis VI
     Dosage: UNK, QW
     Route: 042
     Dates: start: 20191024

REACTIONS (1)
  - Corneal transplant [Not Recovered/Not Resolved]

NARRATIVE: CASE EVENT DATE: 20190919
